FAERS Safety Report 9472379 (Version 1)
Quarter: 2013Q3

REPORT INFORMATION
  Report Type: Spontaneous
  Country: US (occurrence: None)
  Receive Date: 20130821
  Receipt Date: 20130821
  Transmission Date: 20140515
  Serious: No
  Sender: FDA-Public Use
  Company Number: None

PATIENT
  Age: 4 Year
  Sex: Male
  Weight: 14.52 kg

DRUGS (1)
  1. SINGULAIR [Suspect]
     Indication: MULTIPLE ALLERGIES
     Dates: start: 20130722, end: 20130820

REACTIONS (8)
  - Irritability [None]
  - Mood swings [None]
  - Anger [None]
  - Crying [None]
  - Anxiety [None]
  - Abnormal dreams [None]
  - Hallucination, visual [None]
  - Incontinence [None]
